FAERS Safety Report 25442004 (Version 1)
Quarter: 2025Q2

REPORT INFORMATION
  Report Type: Spontaneous
  Country: TW (occurrence: TW)
  Receive Date: 20250616
  Receipt Date: 20250616
  Transmission Date: 20250717
  Serious: Yes (Other)
  Sender: OTSUKA
  Company Number: TW-MMM-Otsuka-4JNWKRC3

PATIENT
  Age: 36 Year
  Sex: Female

DRUGS (2)
  1. TOLVAPTAN [Suspect]
     Active Substance: TOLVAPTAN
     Indication: Product used for unknown indication
     Dosage: 45 MG, DAILY
     Route: 048
     Dates: end: 202505
  2. TOLVAPTAN [Suspect]
     Active Substance: TOLVAPTAN
     Dosage: 15 MG, DAILY
     Route: 048
     Dates: end: 202505

REACTIONS (1)
  - Bladder cancer [Unknown]
